FAERS Safety Report 7772875-X (Version None)
Quarter: 2011Q3

REPORT INFORMATION
  Report Type: 
  Country: None (occurrence: None)
  Receive Date: 20110922
  Receipt Date: 20100929
  Transmission Date: 20111222
  Serious: No
  Sender: FDA-Public Use
  Company Number: US-ASTRAZENECA-2010SE45916

PATIENT
  Sex: Female
  Weight: 59 kg

DRUGS (6)
  1. LIPITOR [Concomitant]
     Indication: HYPERCHOLESTEROLAEMIA
     Route: 048
  2. SEROQUEL [Suspect]
     Indication: INSOMNIA
     Route: 048
     Dates: start: 20100501
  3. ATENOLOL [Concomitant]
     Indication: HYPERTENSION
     Route: 048
  4. EFFEXOR [Concomitant]
     Route: 048
  5. SEROQUEL [Suspect]
     Route: 048
  6. SEROQUEL [Suspect]
     Route: 048

REACTIONS (4)
  - INTENTIONAL DRUG MISUSE [None]
  - CRYING [None]
  - DRUG INEFFECTIVE FOR UNAPPROVED INDICATION [None]
  - INSOMNIA [None]
